FAERS Safety Report 9119650 (Version 1)
Quarter: 2013Q1

REPORT INFORMATION
  Report Type: Spontaneous
  Country: US (occurrence: US)
  Receive Date: 20130226
  Receipt Date: 20130226
  Transmission Date: 20140127
  Serious: Yes (Other)
  Sender: FDA-Public Use
  Company Number: US-MYLANLABS-2013S1003569

PATIENT
  Age: 19 Month
  Sex: Female

DRUGS (8)
  1. PHENYLEPHRINE [Suspect]
     Dosage: 2.5% (1 DROP FOR EACH EYE).
     Route: 061
  2. AFRIN [Interacting]
     Dosage: 0.05%; TWO SPRAYS INTO RIGHT NOSTRIL AT START OF 2ND AND 3RD CYCLES
     Route: 045
  3. DIPHENHYDRAMINE [Interacting]
     Indication: CONTRAST MEDIA ALLERGY
     Dosage: 10MG
     Route: 042
  4. SALBUTAMOL AEROSOL [Interacting]
     Indication: BRONCHOSPASM
     Dosage: 180 MICROG
     Route: 055
  5. MELPHALAN [Concomitant]
     Indication: RETINOBLASTOMA
     Dosage: 3MG OVER 30 MINUTES DURING EACH INFUSION
     Route: 013
  6. ASPIRIN [Concomitant]
     Dosage: 10 MG/KG BEFORE EACH PROCEDURE
     Route: 065
  7. HEPARIN [Concomitant]
     Dosage: 75 UNITS/KG
     Route: 042
  8. HYDROCORTISONE [Concomitant]
     Dosage: 10MG
     Route: 042

REACTIONS (2)
  - Drug interaction [Recovered/Resolved]
  - Cerebral vasoconstriction [Recovered/Resolved]
